FAERS Safety Report 23892611 (Version 1)
Quarter: 2024Q2

REPORT INFORMATION
  Report Type: Spontaneous
  Country: US (occurrence: None)
  Receive Date: 20240524
  Receipt Date: 20240524
  Transmission Date: 20240716
  Serious: No
  Sender: FDA-Public Use
  Company Number: US-ROCHE-3443017

PATIENT
  Age: 37 Year
  Sex: Female
  Weight: 58.7 kg

DRUGS (5)
  1. OCREVUS [Suspect]
     Active Substance: OCRELIZUMAB
     Indication: Relapsing-remitting multiple sclerosis
     Route: 065
     Dates: start: 201902
  2. OCREVUS [Suspect]
     Active Substance: OCRELIZUMAB
     Dosage: DEC/2020, MAR/2021, SEP/2021, FEB/2022, JUL/2022, JAN/2023, AND HER LAST DOSE WAS IN JUL/2023
     Route: 065
     Dates: start: 201908
  3. VITAMIN D [Concomitant]
     Active Substance: VITAMIN D NOS
  4. BIOTIN [Concomitant]
     Active Substance: BIOTIN
  5. VITAMINS [Concomitant]
     Active Substance: VITAMINS

REACTIONS (3)
  - Granuloma annulare [Unknown]
  - Maternal exposure before pregnancy [Unknown]
  - Maternal exposure during pregnancy [Unknown]
